FAERS Safety Report 24151969 (Version 1)
Quarter: 2024Q3

REPORT INFORMATION
  Report Type: Spontaneous
  Country: US (occurrence: US)
  Receive Date: 20240730
  Receipt Date: 20240730
  Transmission Date: 20241017
  Serious: No
  Sender: SAREPTA THERAPEUTICS
  Company Number: US-SAREPTA THERAPEUTICS INC.-SRP2024-004714

PATIENT
  Age: 8 Year
  Sex: Male
  Weight: 39.002 kg

DRUGS (1)
  1. AMONDYS 45 [Suspect]
     Active Substance: CASIMERSEN
     Indication: Muscular dystrophy
     Dosage: 900 MILLIGRAM, WEEKLY
     Route: 042

REACTIONS (3)
  - Catheter site pain [Recovered/Resolved]
  - Device issue [Unknown]
  - Product dose omission issue [Unknown]

NARRATIVE: CASE EVENT DATE: 20240602
